FAERS Safety Report 20408047 (Version 1)
Quarter: 2022Q1

REPORT INFORMATION
  Report Type: Other
  Country: DE (occurrence: None)
  Receive Date: 20220201
  Receipt Date: 20220201
  Transmission Date: 20220424
  Serious: Yes (Hospitalization)
  Sender: FDA-Public Use
  Company Number: DE-ROCHE-3006713

PATIENT
  Age: 29 Year
  Sex: Female
  Weight: 66 kg

DRUGS (1)
  1. OCRELIZUMAB [Suspect]
     Active Substance: OCRELIZUMAB
     Indication: Relapsing-remitting multiple sclerosis
     Dosage: THERAPY ONGOING
     Route: 065
     Dates: start: 20180308

REACTIONS (2)
  - Ureterolithiasis [Recovered/Resolved]
  - Hydronephrosis [Recovered/Resolved]
